FAERS Safety Report 8128949-7 (Version None)
Quarter: 2012Q1

REPORT INFORMATION
  Report Type: 
  Country: None (occurrence: None)
  Receive Date: 20120210
  Receipt Date: 20110623
  Transmission Date: 20120608
  Serious: No
  Sender: FDA-Public Use
  Company Number: US-BRISTOL-MYERS SQUIBB COMPANY-15841778

PATIENT
  Age: 80 Year
  Sex: Female

DRUGS (1)
  1. ORENCIA [Suspect]
     Indication: RHEUMATOID ARTHRITIS
     Dosage: 2 OR 3 INFUSIONS
     Route: 042
     Dates: start: 20110124

REACTIONS (4)
  - HEADACHE [None]
  - MIGRAINE [None]
  - FATIGUE [None]
  - INFLUENZA LIKE ILLNESS [None]
